FAERS Safety Report 7828821-3 (Version None)
Quarter: 2011Q4

REPORT INFORMATION
  Report Type: 
  Country: None (occurrence: None)
  Receive Date: 20111020
  Receipt Date: 20110926
  Transmission Date: 20120403
  Serious: Yes (Hospitalization)
  Sender: FDA-Public Use
  Company Number: IT-BAYER-2011-090951

PATIENT
  Age: 66 Year
  Sex: Male

DRUGS (6)
  1. RABEPRAZOLE SODIUM [Concomitant]
     Dosage: DAILY DOSE 10 MG
     Route: 048
     Dates: start: 20080818, end: 20110817
  2. MINIAS [Concomitant]
     Dosage: DAILY DOSE 10 GTT
     Route: 048
     Dates: start: 20090801, end: 20110817
  3. SIMVASTATIN [Concomitant]
     Dosage: DAILY DOSE 20 MG
     Route: 048
     Dates: start: 19960801, end: 20110817
  4. ASPIRIN [Suspect]
     Indication: PLATELET AGGREGATION INHIBITION
     Dosage: 100 MG, QD
     Route: 048
     Dates: start: 19960801, end: 20110818
  5. PRILACE [Concomitant]
     Dosage: DAILY DOSE 11 MG
     Route: 048
     Dates: start: 20060801, end: 20110817
  6. TENORETIC 100 [Concomitant]
     Dosage: DAILY DOSE 125 MG
     Route: 048
     Dates: start: 20010801, end: 20110817

REACTIONS (4)
  - HAEMATEMESIS [None]
  - GASTRIC ULCER [None]
  - MELAENA [None]
  - DUODENAL ULCER [None]
